FAERS Safety Report 18358513 (Version 21)
Quarter: 2025Q2

REPORT INFORMATION
  Report Type: Report from Study
  Country: US (occurrence: US)
  Receive Date: 20201008
  Receipt Date: 20250630
  Transmission Date: 20250717
  Serious: Yes (Other)
  Sender: TAKEDA
  Company Number: US-SHIRE-US202032402

PATIENT
  Sex: Female
  Weight: 88 kg

DRUGS (57)
  1. HUMAN IMMUNOGLOBULIN G [Suspect]
     Active Substance: HUMAN IMMUNOGLOBULIN G
     Indication: Immunodeficiency common variable
     Dosage: 35 GRAM, Q4WEEKS
     Dates: start: 20151110
  2. HUMAN IMMUNOGLOBULIN G [Suspect]
     Active Substance: HUMAN IMMUNOGLOBULIN G
     Dosage: 35 GRAM, Q4WEEKS
  3. HUMAN IMMUNOGLOBULIN G [Suspect]
     Active Substance: HUMAN IMMUNOGLOBULIN G
     Dosage: 35 GRAM, Q4WEEKS
  4. EPINEPHRINE [Concomitant]
     Active Substance: EPINEPHRINE
  5. ACETAMINOPHEN [Concomitant]
     Active Substance: ACETAMINOPHEN
  6. OMEPRAZOLE [Concomitant]
     Active Substance: OMEPRAZOLE
  7. AMLODIPINE BESYLATE [Concomitant]
     Active Substance: AMLODIPINE BESYLATE
  8. MELOXICAM [Concomitant]
     Active Substance: MELOXICAM
  9. OZEMPIC [Concomitant]
     Active Substance: SEMAGLUTIDE
  10. DOCUSATE SODIUM [Concomitant]
     Active Substance: DOCUSATE SODIUM
  11. VITAMIN C [Concomitant]
     Active Substance: ASCORBIC ACID
  12. PHENTERMINE HYDROCHLORIDE [Concomitant]
     Active Substance: PHENTERMINE HYDROCHLORIDE
  13. KLOR-CON [Concomitant]
     Active Substance: POTASSIUM CHLORIDE
  14. HYDROCHLOROTHIAZIDE [Concomitant]
     Active Substance: HYDROCHLOROTHIAZIDE
  15. IBUPROFEN [Concomitant]
     Active Substance: IBUPROFEN
  16. ISOSORBIDE MONONITRATE [Concomitant]
     Active Substance: ISOSORBIDE MONONITRATE
  17. SODIUM CHLORIDE [Concomitant]
     Active Substance: SODIUM CHLORIDE
  18. ALPHAGAN P [Concomitant]
     Active Substance: BRIMONIDINE TARTRATE
  19. ALBUTEROL SULFATE [Concomitant]
     Active Substance: ALBUTEROL SULFATE
  20. LASIX [Concomitant]
     Active Substance: FUROSEMIDE
  21. LATANOPROST [Concomitant]
     Active Substance: LATANOPROST
  22. LOSARTAN POTASSIUM [Concomitant]
     Active Substance: LOSARTAN POTASSIUM
  23. RHOPRESSA [Concomitant]
     Active Substance: NETARSUDIL MESYLATE
  24. VITAMIN E [Concomitant]
     Active Substance: .ALPHA.-TOCOPHEROL
  25. VITAMIN D3 [Concomitant]
     Active Substance: CHOLECALCIFEROL
  26. ZANTAC [Concomitant]
     Active Substance: RANITIDINE HYDROCHLORIDE
  27. SENNOSIDES [Concomitant]
     Active Substance: SENNOSIDES
  28. COMBIVENT RESPIMAT [Concomitant]
     Active Substance: ALBUTEROL SULFATE\IPRATROPIUM BROMIDE
  29. MONTELUKAST SODIUM [Concomitant]
     Active Substance: MONTELUKAST SODIUM
  30. IRON [Concomitant]
     Active Substance: IRON
  31. APPLE CIDER VINEGAR [Concomitant]
     Active Substance: APPLE CIDER VINEGAR
  32. METFORMIN HYDROCHLORIDE [Concomitant]
     Active Substance: METFORMIN HYDROCHLORIDE
  33. DIPHENHYDRAMINE HYDROCHLORIDE [Concomitant]
     Active Substance: DIPHENHYDRAMINE HYDROCHLORIDE
  34. Lmx [Concomitant]
  35. GABAPENTIN [Concomitant]
     Active Substance: GABAPENTIN
  36. PERFOROMIST [Concomitant]
     Active Substance: FORMOTEROL FUMARATE DIHYDRATE
  37. ISOSORBIDE [Concomitant]
     Active Substance: ISOSORBIDE
  38. DIPHENHYDRAMINE [Concomitant]
     Active Substance: DIPHENHYDRAMINE
  39. LIDOCAINE [Concomitant]
     Active Substance: LIDOCAINE
  40. JANUVIA [Concomitant]
     Active Substance: SITAGLIPTIN PHOSPHATE
  41. VENLAFAXINE [Concomitant]
     Active Substance: VENLAFAXINE HYDROCHLORIDE
  42. PRALUENT [Concomitant]
     Active Substance: ALIROCUMAB
  43. FENOFIBRATE [Concomitant]
     Active Substance: FENOFIBRATE
  44. LOSARTAN [Concomitant]
     Active Substance: LOSARTAN
  45. HYDROCHLOROTHIAZIDE [Concomitant]
     Active Substance: HYDROCHLOROTHIAZIDE
  46. MAGNESIUM [Concomitant]
     Active Substance: MAGNESIUM
  47. ASPIRIN [Concomitant]
     Active Substance: ASPIRIN
  48. METFORMIN [Concomitant]
     Active Substance: METFORMIN HYDROCHLORIDE
  49. VENTOLIN [Concomitant]
     Active Substance: ALBUTEROL SULFATE
  50. MONTELUKAST [Concomitant]
     Active Substance: MONTELUKAST
  51. BUDESONIDE [Concomitant]
     Active Substance: BUDESONIDE
  52. SENNA S [Concomitant]
     Active Substance: DOCUSATE SODIUM\SENNOSIDES
  53. VITAMINS [Concomitant]
     Active Substance: VITAMINS
  54. POTASSIUM CHLORIDE [Concomitant]
     Active Substance: POTASSIUM CHLORIDE
  55. ALBUTEROL [Concomitant]
     Active Substance: ALBUTEROL
  56. VITAMIN B [Concomitant]
     Active Substance: VITAMIN B
  57. DIPHENHYDRAMINE HYDROCHLORIDE [Concomitant]
     Active Substance: DIPHENHYDRAMINE HYDROCHLORIDE

REACTIONS (27)
  - Nephrolithiasis [Unknown]
  - Kidney infection [Not Recovered/Not Resolved]
  - Infusion related reaction [Recovering/Resolving]
  - Vulvovaginal mycotic infection [Unknown]
  - Urinary tract infection [Unknown]
  - Illness [Unknown]
  - Multiple allergies [Not Recovered/Not Resolved]
  - Bacterial infection [Unknown]
  - Seasonal allergy [Unknown]
  - Poor venous access [Unknown]
  - Inappropriate schedule of product administration [Unknown]
  - Insurance issue [Unknown]
  - Heart rate decreased [Unknown]
  - Blood cholesterol abnormal [Unknown]
  - Product use issue [Unknown]
  - Sinusitis [Unknown]
  - Blood cholesterol increased [Unknown]
  - Feeling abnormal [Unknown]
  - Blood pressure increased [Recovering/Resolving]
  - Pain [Unknown]
  - Muscle spasms [Unknown]
  - Dyspnoea [Unknown]
  - Vomiting [Recovered/Resolved]
  - Chills [Recovered/Resolved]
  - Arthralgia [Unknown]
  - Nausea [Recovered/Resolved]
  - Fatigue [Unknown]
